FAERS Safety Report 7398434-9 (Version None)
Quarter: 2011Q2

REPORT INFORMATION
  Report Type: 
  Country: None (occurrence: None)
  Receive Date: 20110407
  Receipt Date: 20110331
  Transmission Date: 20111010
  Serious: Yes (Hospitalization)
  Sender: FDA-Public Use
  Company Number: US-BIOGENIDEC-2010BI040261

PATIENT
  Age: 44 Year
  Sex: Male

DRUGS (13)
  1. MEGACE [Concomitant]
  2. AMBIEN [Concomitant]
  3. PLAVIX [Concomitant]
  4. FLAGYL [Concomitant]
  5. ATENOLOL [Concomitant]
  6. BACLOFEN [Concomitant]
  7. CLONAZEPAM [Concomitant]
  8. LEXAPRO [Concomitant]
  9. PEPCID [Concomitant]
  10. TYSABRI [Suspect]
     Indication: MULTIPLE SCLEROSIS
     Route: 042
     Dates: start: 20100812, end: 20101008
  11. IMDUR [Concomitant]
  12. TREXONE [Concomitant]
  13. SIMVASTATIN [Concomitant]

REACTIONS (5)
  - FUNGAL INFECTION [None]
  - DECREASED APPETITE [None]
  - DYSPHAGIA [None]
  - HYPOTENSION [None]
  - CANDIDURIA [None]
